FAERS Safety Report 6173316-9 (Version None)
Quarter: 2009Q2

REPORT INFORMATION
  Report Type: 
  Country: None (occurrence: None)
  Receive Date: 20090430
  Receipt Date: 20090427
  Transmission Date: 20091009
  Serious: Yes (Hospitalization, Other)
  Sender: FDA-Public Use
  Company Number: PHHO2006US17916

PATIENT
  Sex: Male
  Weight: 133.6 kg

DRUGS (27)
  1. CIBADREX T29368+ [Suspect]
     Indication: HYPERTENSION
     Dosage: LEVEL 1
     Route: 048
     Dates: start: 20040507
  2. CIBADREX T29368+ [Suspect]
     Dosage: OFF STUDY DRUG
     Dates: start: 20051007
  3. METOLAZONE [Suspect]
  4. LASIX [Suspect]
  5. AVANDIA [Concomitant]
  6. GLYBURIDE [Concomitant]
  7. PROZAC [Concomitant]
  8. SYNTHROID [Concomitant]
  9. ZOCOR [Concomitant]
  10. METFORMIN HCL [Concomitant]
  11. ASPIRIN [Concomitant]
  12. VIAGRA [Concomitant]
  13. RANITIDINE [Concomitant]
  14. NASAREL [Concomitant]
  15. COZAAR [Concomitant]
  16. INSULIN [Concomitant]
  17. ALBUTEROL [Concomitant]
  18. ATENOLOL [Concomitant]
  19. NITROGLYCERIN [Concomitant]
  20. ADVAIR HFA [Concomitant]
  21. AMOXICILLIN [Concomitant]
  22. FLONASE [Concomitant]
  23. LEVOTHROID [Concomitant]
  24. LIPITOR [Concomitant]
  25. ZANTAC [Concomitant]
  26. PAXIL [Concomitant]
  27. LEVITRA [Concomitant]

REACTIONS (17)
  - ABDOMINAL PAIN LOWER [None]
  - ACUTE PRERENAL FAILURE [None]
  - ANAEMIA [None]
  - ASTHENIA [None]
  - CONFUSIONAL STATE [None]
  - DIARRHOEA [None]
  - DIZZINESS [None]
  - ELECTROCARDIOGRAM ST SEGMENT DEPRESSION [None]
  - ELECTROCARDIOGRAM T WAVE INVERSION [None]
  - GASTROENTERITIS VIRAL [None]
  - HYPOKALAEMIA [None]
  - NAUSEA [None]
  - PALLOR [None]
  - PYREXIA [None]
  - RETCHING [None]
  - TROPONIN I INCREASED [None]
  - VOMITING [None]
